FAERS Safety Report 7363108-7 (Version None)
Quarter: 2011Q1

REPORT INFORMATION
  Report Type: 
  Country: None (occurrence: None)
  Receive Date: 20110321
  Receipt Date: 20100712
  Transmission Date: 20110831
  Serious: Yes (Other)
  Sender: FDA-Public Use
  Company Number: US-BAYER-201016034NA

PATIENT
  Sex: Female
  Weight: 136 kg

DRUGS (14)
  1. YASMIN [Suspect]
     Indication: PRODUCT USED FOR UNKNOWN INDICATION
  2. TEQUIN [Concomitant]
     Dosage: UNK
     Dates: start: 20020101
  3. PROMETHAZINE [Concomitant]
     Dosage: 25 MG, UNK
  4. PERCOCET [Concomitant]
     Dosage: 10 MG, TID
  5. OXYCONTIN [Concomitant]
     Dosage: 60 MG, TID
  6. ALBUTEROL [Concomitant]
     Indication: ASTHMA
     Dosage: UNK
     Dates: start: 20010101, end: 20100101
  7. PROTONIX [Concomitant]
     Dosage: 40 MG, UNK
  8. ADVAIR DISKUS 100/50 [Concomitant]
     Indication: ASTHMA
     Dosage: UNK
     Dates: start: 20010101, end: 20100101
  9. IBUPROFEN [Concomitant]
     Dosage: 800 MG, UNK
  10. SINGULAIR [Concomitant]
     Indication: ASTHMA
     Dosage: 10 MG, UNK
     Dates: start: 20010101, end: 20100101
  11. LOVENOX [Concomitant]
     Indication: THROMBOSIS PROPHYLAXIS
  12. YAZ [Suspect]
     Indication: PRODUCT USED FOR UNKNOWN INDICATION
  13. METFORMIN [Concomitant]
     Dosage: 1000 MG, UNK
  14. MEDROXYPROGESTERONE [Concomitant]
     Indication: POLYCYSTIC OVARIES
     Dosage: 10 UNK, UNK

REACTIONS (5)
  - INJURY [None]
  - HEART INJURY [None]
  - PULMONARY EMBOLISM [None]
  - DEEP VEIN THROMBOSIS [None]
  - THROMBOSIS [None]
